FAERS Safety Report 4918788-X (Version None)
Quarter: 2006Q1

REPORT INFORMATION
  Report Type: 
  Country: None (occurrence: None)
  Receive Date: 20060216
  Receipt Date: 20060127
  Transmission Date: 20060701
  Serious: Yes (Hospitalization)
  Sender: FDA-Public Use
  Company Number: 2006BH003087

PATIENT

DRUGS (8)
  1. SODIUM CHLORIDE 0.9% [Suspect]
  2. SODIUM CHLORIDE 0.9% [Suspect]
  3. SODIUM CHLORIDE 0.9% [Suspect]
  4. SODIUM CHLORIDE 0.9% [Suspect]
  5. SODIUM CHLORIDE 0.9% [Suspect]
  6. SODIUM CHLORIDE 0.9% [Suspect]
  7. SODIUM CHLORIDE 0.9% [Suspect]
  8. SODIUM CHLORIDE 0.9% [Suspect]

REACTIONS (3)
  - ENTEROBACTER INFECTION [None]
  - PHARMACEUTICAL PRODUCT COMPLAINT [None]
  - POOR QUALITY DRUG ADMINISTERED [None]
